FAERS Safety Report 19516669 (Version 1)
Quarter: 2021Q3

REPORT INFORMATION
  Report Type: Spontaneous
  Country: GB (occurrence: GB)
  Receive Date: 20210709
  Receipt Date: 20210709
  Transmission Date: 20211014
  Serious: Yes (Other)
  Sender: FDA-Public Use
  Company Number: GB-CANTON LABORATORIES, LLC-2113686

PATIENT
  Age: 32 Year

DRUGS (3)
  1. NAPROSYN [Suspect]
     Active Substance: NAPROXEN
     Indication: PRODUCT USED FOR UNKNOWN INDICATION
     Route: 065
  2. COCODAMOL [Suspect]
     Active Substance: ACETAMINOPHEN\CODEINE PHOSPHATE
     Route: 065
  3. ASTRAZENECA COVID?19 VACCINE [Suspect]
     Active Substance: AZD-1222
     Route: 065

REACTIONS (18)
  - Dizziness [Recovered/Resolved]
  - Pyrexia [Recovered/Resolved]
  - Pyrexia [Recovered/Resolved]
  - Back pain [Recovered/Resolved]
  - Gait disturbance [Recovered/Resolved]
  - Migraine [Recovered/Resolved]
  - Deafness [Recovered/Resolved]
  - Influenza [Recovered/Resolved]
  - Tremor [Recovered/Resolved]
  - Influenza like illness [Recovered/Resolved]
  - Contusion [Recovered/Resolved]
  - Dizziness [Recovering/Resolving]
  - Nerve injury [Recovered/Resolved]
  - Monoplegia [Recovering/Resolving]
  - Nausea [Recovered/Resolved]
  - Blindness [Recovered/Resolved]
  - Muscular weakness [Not Recovered/Not Resolved]
  - Pain in extremity [Not Recovered/Not Resolved]

NARRATIVE: CASE EVENT DATE: 20210313
